FAERS Safety Report 25311599 (Version 1)
Quarter: 2025Q2

REPORT INFORMATION
  Report Type: Spontaneous
  Country: US (occurrence: US)
  Receive Date: 20250514
  Receipt Date: 20250514
  Transmission Date: 20250717
  Serious: Yes (Death, Other)
  Sender: AUROBINDO
  Company Number: US-AUROBINDO-AUR-APL-2025-023913

PATIENT
  Age: 49 Year
  Sex: Female

DRUGS (2)
  1. METHYLPREDNISOLONE [Suspect]
     Active Substance: METHYLPREDNISOLONE
     Indication: Gastrointestinal disorder
     Route: 042
  2. USTEKINUMAB [Concomitant]
     Active Substance: USTEKINUMAB
     Indication: Product used for unknown indication
     Route: 065

REACTIONS (4)
  - Necrotising fasciitis [Fatal]
  - Tachycardia [Unknown]
  - Pain in extremity [Unknown]
  - Peripheral swelling [Unknown]
